FAERS Safety Report 17114014 (Version 1)
Quarter: 2019Q4

REPORT INFORMATION
  Report Type: Spontaneous
  Country: JP (occurrence: JP)
  Receive Date: 20191205
  Receipt Date: 20191205
  Transmission Date: 20200122
  Serious: Yes (Death, Life-Threatening, Hospitalization, Other)
  Sender: FDA-Public Use
  Company Number: JP-009507513-1908JPN002860J

PATIENT
  Age: 63 Year
  Sex: Male
  Weight: 65 kg

DRUGS (3)
  1. CARBOPLATIN. [Suspect]
     Active Substance: CARBOPLATIN
     Indication: NON-SMALL CELL LUNG CANCER
     Dosage: 550 MILLIGRAM, Q3W
     Route: 041
     Dates: start: 20190625, end: 20190723
  2. ALIMTA [Suspect]
     Active Substance: PEMETREXED DISODIUM
     Indication: NON-SMALL CELL LUNG CANCER
     Dosage: 900 MILLIGRAM, Q3W
     Route: 041
     Dates: start: 20190625, end: 20190723
  3. KEYTRUDA [Suspect]
     Active Substance: PEMBROLIZUMAB
     Indication: NON-SMALL CELL LUNG CANCER
     Dosage: 200 MILLIGRAM, Q3W
     Route: 041
     Dates: start: 20190625, end: 20190723

REACTIONS (3)
  - Interstitial lung disease [Recovering/Resolving]
  - Malignant neoplasm progression [Fatal]
  - Toxic epidermal necrolysis [Recovered/Resolved]

NARRATIVE: CASE EVENT DATE: 20190811
